FAERS Safety Report 14802115 (Version 3)
Quarter: 2021Q2

REPORT INFORMATION
  Report Type: Spontaneous
  Country: US (occurrence: US)
  Receive Date: 20180424
  Receipt Date: 20210408
  Transmission Date: 20210716
  Serious: No
  Sender: FDA-Public Use
  Company Number: US-BIOGEN-2018BI00558312

PATIENT
  Sex: Female

DRUGS (1)
  1. TYSABRI [Suspect]
     Active Substance: NATALIZUMAB
     Indication: MULTIPLE SCLEROSIS
     Route: 050
     Dates: start: 20130402

REACTIONS (3)
  - Prescribed underdose [Unknown]
  - Acne [Recovered/Resolved]
  - Axillary mass [Recovered/Resolved]

NARRATIVE: CASE EVENT DATE: 2015
